FAERS Safety Report 5080321-2 (Version None)
Quarter: 2006Q3

REPORT INFORMATION
  Report Type: 
  Country: None (occurrence: None)
  Receive Date: 20060815
  Receipt Date: 20060807
  Transmission Date: 20061208
  Serious: Yes (Death)
  Sender: FDA-Public Use
  Company Number: PHBS2006US11862

PATIENT
  Age: 54 Year
  Sex: Male

DRUGS (3)
  1. AZATHIOPRINE [Suspect]
     Indication: HEART TRANSPLANT
     Route: 065
  2. CORTICOSTEROIDS [Concomitant]
     Indication: HEART TRANSPLANT
  3. CYCLOSPORINE [Suspect]
     Indication: HEART TRANSPLANT
     Route: 065

REACTIONS (19)
  - ASTHENIA [None]
  - CARDIAC ARREST [None]
  - CARDIAC FAILURE [None]
  - CHILLS [None]
  - CORONARY ARTERY DISEASE [None]
  - DIZZINESS [None]
  - EJECTION FRACTION DECREASED [None]
  - EXTRACORPOREAL MEMBRANE OXYGENATION [None]
  - FATIGUE [None]
  - GENERALISED OEDEMA [None]
  - HEART TRANSPLANT REJECTION [None]
  - MULTI-ORGAN FAILURE [None]
  - PLEURAL EFFUSION [None]
  - PULMONARY CONGESTION [None]
  - PULMONARY HYPERTENSION [None]
  - PYREXIA [None]
  - RIGHT VENTRICULAR FAILURE [None]
  - VENTRICULAR HYPERTROPHY [None]
  - VENTRICULAR HYPOKINESIA [None]
